FAERS Safety Report 12649409 (Version 2)
Quarter: 2016Q3

REPORT INFORMATION
  Report Type: Spontaneous
  Country: US (occurrence: US)
  Receive Date: 20160812
  Receipt Date: 20160906
  Transmission Date: 20161109
  Serious: Yes (Other)
  Sender: FDA-Public Use
  Company Number: US-SA-2016SA140905

PATIENT
  Age: 68 Year
  Sex: Female
  Weight: 99.6 kg

DRUGS (6)
  1. LANTUS SOLOSTAR [Concomitant]
     Active Substance: INSULIN GLARGINE
  2. FIBER [Concomitant]
     Active Substance: PSYLLIUM HUSK
     Dates: start: 2015
  3. SOLOSTAR [Concomitant]
     Active Substance: DEVICE
     Indication: TYPE 2 DIABETES MELLITUS
     Dates: start: 20160729, end: 20160730
  4. SOLOSTAR [Concomitant]
     Active Substance: DEVICE
  5. OMEGA 3 [Concomitant]
     Active Substance: OMEGA-3 FATTY ACIDS
     Dosage: DOSE:2000 UNIT(S)
     Dates: start: 2015
  6. TOUJEO [Suspect]
     Active Substance: INSULIN GLARGINE
     Indication: TYPE 2 DIABETES MELLITUS
     Dosage: DOSE:60 UNIT(S)
     Route: 065
     Dates: start: 20160729, end: 20160730

REACTIONS (3)
  - Cardiac flutter [Recovered/Resolved]
  - Memory impairment [Unknown]
  - Arrhythmia [Unknown]

NARRATIVE: CASE EVENT DATE: 20160729
